FAERS Safety Report 14349314 (Version 1)
Quarter: 2018Q1

REPORT INFORMATION
  Report Type: Spontaneous
  Country: FR (occurrence: FR)
  Receive Date: 20180104
  Receipt Date: 20180104
  Transmission Date: 20180509
  Serious: Yes (Other)
  Sender: FDA-Public Use
  Company Number: FR-MERCK KGAA-2038329

PATIENT
  Sex: Female
  Weight: 53 kg

DRUGS (3)
  1. EUTHYRAL(NOVOTHYRAL) [Concomitant]
     Route: 048
     Dates: start: 20170914
  2. NOVOTHYROX [Suspect]
     Active Substance: LEVOTHYROXINE SODIUM
     Indication: HYPOTHYROIDISM
     Route: 048
     Dates: start: 20170601, end: 20170913
  3. LEVOTHYROX [Concomitant]
     Active Substance: LEVOTHYROXINE
     Route: 048
     Dates: start: 2014, end: 20170601

REACTIONS (11)
  - Headache [Recovered/Resolved]
  - Amnestic disorder [Not Recovered/Not Resolved]
  - Weight increased [Recovered/Resolved]
  - Diffuse alopecia [Not Recovered/Not Resolved]
  - Blood thyroid stimulating hormone decreased [Not Recovered/Not Resolved]
  - Asthenia [Recovered/Resolved]
  - Hyperhidrosis [Recovered/Resolved]
  - Insomnia [Recovered/Resolved]
  - Dyspepsia [Recovered/Resolved]
  - Palpitations [Recovered/Resolved]
  - Irritability [Recovered/Resolved]

NARRATIVE: CASE EVENT DATE: 20170601
